FAERS Safety Report 25649684 (Version 1)
Quarter: 2025Q3

REPORT INFORMATION
  Report Type: Other
  Country: CA (occurrence: CA)
  Receive Date: 20250806
  Receipt Date: 20250806
  Transmission Date: 20251021
  Serious: Yes (Death, Hospitalization, Other)
  Sender: APOTEX
  Company Number: CA-PGRTD-E2B_06642527

PATIENT
  Age: 81 Year
  Sex: Female

DRUGS (1)
  1. AMBRISENTAN [Suspect]
     Active Substance: AMBRISENTAN
     Indication: Pulmonary arterial hypertension
     Dosage: 1 EVERY 1 DAYS
     Route: 048

REACTIONS (9)
  - Death [Fatal]
  - Haemorrhage subcutaneous [Unknown]
  - Cerebral haemorrhage [Unknown]
  - Fall [Unknown]
  - Diarrhoea [Unknown]
  - Hospitalisation [Unknown]
  - Syncope [Unknown]
  - Skeletal injury [Unknown]
  - Contusion [Unknown]
